FAERS Safety Report 20566038 (Version 6)
Quarter: 2022Q4

REPORT INFORMATION
  Report Type: Report from Study
  Country: US (occurrence: US)
  Receive Date: 20220308
  Receipt Date: 20221021
  Transmission Date: 20230113
  Serious: No
  Sender: FDA-Public Use
  Company Number: US-NOVARTISTESTPH-NVSC2022US053710

PATIENT
  Sex: Female

DRUGS (3)
  1. COSENTYX [Suspect]
     Active Substance: SECUKINUMAB
     Indication: Psoriasis
     Dosage: 150 MG, QW (LOADING DOSES)
     Route: 058
  2. COSENTYX [Suspect]
     Active Substance: SECUKINUMAB
     Indication: Psoriatic arthropathy
     Dosage: 150 MG, QMO
     Route: 058
  3. UNSPECIFIED INGREDIENT [Concomitant]
     Active Substance: UNSPECIFIED INGREDIENT
     Indication: Product used for unknown indication
     Dosage: UNK
     Route: 065

REACTIONS (12)
  - Pruritus [Unknown]
  - Injection site pain [Unknown]
  - Device use issue [Unknown]
  - Psoriasis [Unknown]
  - Fatigue [Unknown]
  - Anxiety [Unknown]
  - Agoraphobia [Unknown]
  - Back pain [Unknown]
  - Hypersensitivity [Unknown]
  - Cough [Unknown]
  - Sneezing [Unknown]
  - Eye swelling [Unknown]
